FAERS Safety Report 6919037-3 (Version None)
Quarter: 2010Q3

REPORT INFORMATION
  Report Type: 
  Country: None (occurrence: None)
  Receive Date: 20100811
  Receipt Date: 20100809
  Transmission Date: 20110219
  Serious: Yes (Other)
  Sender: FDA-Public Use
  Company Number: US-ROXANE LABORATORIES, INC.-2010-RO-00995RO

PATIENT
  Age: 22 Year
  Sex: Female

DRUGS (2)
  1. COCAINE [Suspect]
  2. LEVAMISOLE [Suspect]

REACTIONS (4)
  - DRUG ABUSE [None]
  - DRUG TOXICITY [None]
  - LEUKOCYTOCLASTIC VASCULITIS [None]
  - NEUTROPENIA [None]
